FAERS Safety Report 9324263 (Version 2)
Quarter: 2013Q2

REPORT INFORMATION
  Report Type: Spontaneous
  Country: US (occurrence: US)
  Receive Date: 20130603
  Receipt Date: 20130619
  Transmission Date: 20140414
  Serious: No
  Sender: FDA-Public Use
  Company Number: US-ROXANE LABORATORIES, INC.-2013-RO-00860RO

PATIENT
  Age: 59 Year
  Sex: Female
  Weight: 106 kg

DRUGS (2)
  1. CODEINE SULFATE [Suspect]
     Indication: PAIN
     Route: 048
     Dates: start: 20130516
  2. BICILLIN [Concomitant]
     Indication: LYME DISEASE

REACTIONS (3)
  - Drug ineffective [Not Recovered/Not Resolved]
  - Product quality issue [Not Recovered/Not Resolved]
  - Nausea [Unknown]
